FAERS Safety Report 25074144 (Version 2)
Quarter: 2025Q1

REPORT INFORMATION
  Report Type: Spontaneous
  Country: MY (occurrence: MY)
  Receive Date: 20250313
  Receipt Date: 20250323
  Transmission Date: 20250409
  Serious: Yes (Disabling)
  Sender: TORRENT PHARMA INC.
  Company Number: MY-TORRENT-00000385

PATIENT
  Age: 66 Year
  Sex: Female
  Weight: 60 kg

DRUGS (1)
  1. AMLODIPINE [Suspect]
     Active Substance: AMLODIPINE BESYLATE
     Indication: Hypertension
     Dosage: TABLET AMLODIPINE 5 MG
     Route: 048

REACTIONS (2)
  - Gingival hypertrophy [Recovered/Resolved]
  - Mastication disorder [Recovering/Resolving]
